FAERS Safety Report 7828890-0 (Version None)
Quarter: 2011Q4

REPORT INFORMATION
  Report Type: 
  Country: None (occurrence: None)
  Receive Date: 20111020
  Receipt Date: 20111007
  Transmission Date: 20120403
  Serious: Yes (Other)
  Sender: FDA-Public Use
  Company Number: US-BAYER-2011-020156

PATIENT
  Age: 35 Year
  Sex: Female
  Weight: 83.9 kg

DRUGS (4)
  1. BOTOX [Concomitant]
     Indication: MIGRAINE
     Dosage: UNK
     Dates: start: 20000101, end: 20100101
  2. VALIUM [Concomitant]
     Indication: SLEEP DISORDER
     Dosage: UNK
     Dates: start: 20060101
  3. YASMIN [Suspect]
     Dosage: UNK
     Dates: start: 20060201
  4. XANAX [Concomitant]
     Indication: ANXIETY
     Dosage: UNK
     Dates: start: 20060101

REACTIONS (10)
  - INJURY [None]
  - MITRAL VALVE PROLAPSE [None]
  - PALPITATIONS [None]
  - MYOCARDIAL INFARCTION [None]
  - VAGINAL INFECTION [None]
  - PAIN [None]
  - GALLBLADDER NON-FUNCTIONING [None]
  - ABDOMINAL DISCOMFORT [None]
  - ANXIETY [None]
  - HEART RATE IRREGULAR [None]
